FAERS Safety Report 12480571 (Version 1)
Quarter: 2016Q2

REPORT INFORMATION
  Report Type: Spontaneous
  Country: GB (occurrence: GB)
  Receive Date: 20160620
  Receipt Date: 20160620
  Transmission Date: 20160815
  Serious: Yes (Other)
  Sender: FDA-Public Use
  Company Number: GB-GLAXOSMITHKLINE-B0360333A

PATIENT
  Sex: Female

DRUGS (2)
  1. PROZAC [Concomitant]
     Active Substance: FLUOXETINE HYDROCHLORIDE
     Indication: PRODUCT USED FOR UNKNOWN INDICATION
     Dosage: UNK
     Route: 065
     Dates: start: 20030513, end: 200702
  2. PAROXETINE HYDROCHLORIDE. [Suspect]
     Active Substance: PAROXETINE HYDROCHLORIDE
     Indication: PRODUCT USED FOR UNKNOWN INDICATION
     Dosage: UNK
     Route: 065
     Dates: start: 19990810

REACTIONS (29)
  - Abdominal pain [Unknown]
  - Musculoskeletal stiffness [Unknown]
  - Aggression [Unknown]
  - Constipation [Unknown]
  - Disturbance in attention [Unknown]
  - Headache [Unknown]
  - Diarrhoea [Unknown]
  - Disturbance in attention [Unknown]
  - Insomnia [Unknown]
  - Abnormal dreams [Unknown]
  - Flushing [Unknown]
  - Withdrawal syndrome [Unknown]
  - Depression [Unknown]
  - Nausea [Unknown]
  - Fatigue [Unknown]
  - Influenza like illness [Unknown]
  - Dizziness [Unknown]
  - Irritability [Unknown]
  - Arthralgia [Unknown]
  - Pain [Unknown]
  - Amnesia [Unknown]
  - Vertigo [Unknown]
  - Sleep disorder [Unknown]
  - Hyperhidrosis [Unknown]
  - Decreased appetite [Unknown]
  - Paraesthesia [Unknown]
  - Joint stiffness [Unknown]
  - Depressed mood [Unknown]
  - Weight increased [Unknown]

NARRATIVE: CASE EVENT DATE: 2002
